FAERS Safety Report 5607659-1 (Version None)
Quarter: 2008Q1

REPORT INFORMATION
  Report Type: 
  Country: None (occurrence: None)
  Receive Date: 20080128
  Receipt Date: 20080128
  Transmission Date: 20080703
  Serious: Yes (Hospitalization)
  Sender: FDA-Public Use
  Company Number: None

PATIENT
  Sex: Female
  Weight: 96 kg

DRUGS (1)
  1. CINACALCET [Suspect]
     Indication: HYPERPARATHYROIDISM SECONDARY
     Dosage: 90 MG DAILY PO
     Route: 048
     Dates: start: 20070801, end: 20080124

REACTIONS (3)
  - GASTRITIS [None]
  - MALLORY-WEISS SYNDROME [None]
  - UPPER GASTROINTESTINAL HAEMORRHAGE [None]
